FAERS Safety Report 7275120-7 (Version None)
Quarter: 2011Q1

REPORT INFORMATION
  Report Type: 
  Country: None (occurrence: None)
  Receive Date: 20110204
  Receipt Date: 20110124
  Transmission Date: 20110831
  Serious: Yes (Other)
  Sender: FDA-Public Use
  Company Number: PHHY2011BR06439

PATIENT
  Sex: Male

DRUGS (1)
  1. RASILEZ AMLO [Suspect]
     Dosage: 300/10 MG

REACTIONS (1)
  - INFARCTION [None]
